FAERS Safety Report 15809522 (Version 1)
Quarter: 2019Q1

REPORT INFORMATION
  Report Type: Spontaneous
  Country: US (occurrence: US)
  Receive Date: 20190111
  Receipt Date: 20190111
  Transmission Date: 20190417
  Serious: No
  Sender: FDA-Public Use
  Company Number: US-AMGEN-USASP2019002309

PATIENT
  Sex: Female

DRUGS (6)
  1. METFORMIN HCL [Concomitant]
     Active Substance: METFORMIN HYDROCHLORIDE
     Dosage: 500 MG, UNK
  2. ESTRADIOL. [Concomitant]
     Active Substance: ESTRADIOL
     Dosage: 0.025 MG, QD
  3. LEVOTHYROXIN [Concomitant]
     Active Substance: LEVOTHYROXINE
     Dosage: 50 MUG, UNK
  4. REPATHA [Suspect]
     Active Substance: EVOLOCUMAB
     Indication: GOITRE
     Dosage: 140 MG, Q2WK
     Route: 058
  5. BYDUREON [Concomitant]
     Active Substance: EXENATIDE
     Dosage: 2 MG, UNK
  6. VENLAFAXINE [Concomitant]
     Active Substance: VENLAFAXINE HYDROCHLORIDE
     Dosage: 75 MG, UNK

REACTIONS (2)
  - Product dose omission [Not Recovered/Not Resolved]
  - Off label use [Unknown]
